FAERS Safety Report 24592355 (Version 1)
Quarter: 2024Q4

REPORT INFORMATION
  Report Type: Report from Study
  Country: US (occurrence: US)
  Receive Date: 20241108
  Receipt Date: 20241108
  Transmission Date: 20250115
  Serious: No
  Sender: ACADIA PHARMACEUTICALS
  Company Number: US-ACADIA PHARMACEUTICALS INC.-ACA-2024-PIM-006534

PATIENT
  Age: 63 Year
  Sex: Male

DRUGS (8)
  1. NUPLAZID [Suspect]
     Active Substance: PIMAVANSERIN TARTRATE
     Indication: Parkinson^s disease psychosis
     Dosage: 34 MILLIGRAM, QD
     Route: 048
     Dates: start: 20240910, end: 20241009
  2. CARBIDOPA\LEVODOPA [Concomitant]
     Active Substance: CARBIDOPA\LEVODOPA
  3. TELMISARTAN [Concomitant]
     Active Substance: TELMISARTAN
  4. ATORVASTATIN [Concomitant]
     Active Substance: ATORVASTATIN
  5. DONEPEZIL [Concomitant]
     Active Substance: DONEPEZIL
  6. ASPIRIN [Concomitant]
     Active Substance: ASPIRIN
  7. SENNA GEN [Concomitant]
     Active Substance: SENNOSIDES
  8. TERBINAFINE [Concomitant]
     Active Substance: TERBINAFINE\TERBINAFINE HYDROCHLORIDE

REACTIONS (3)
  - Hypersomnia [Not Recovered/Not Resolved]
  - Asthenia [Not Recovered/Not Resolved]
  - Somnolence [Not Recovered/Not Resolved]

NARRATIVE: CASE EVENT DATE: 20240910
